APPROVED DRUG PRODUCT: IBRANCE
Active Ingredient: PALBOCICLIB
Strength: 125MG
Dosage Form/Route: TABLET;ORAL
Application: N212436 | Product #003
Applicant: PFIZER INC
Approved: Nov 1, 2019 | RLD: Yes | RS: Yes | Type: RX

PATENTS:
Patent 10723730 | Expires: Feb 8, 2034
Patent 11065250 | Expires: Aug 19, 2036
Patent RE47739 | Expires: Mar 5, 2027
Patent RE47739*PED | Expires: Sep 5, 2027
Patent 10723730*PED | Expires: Aug 8, 2034
Patent 11065250*PED | Expires: Feb 19, 2037

EXCLUSIVITY:
Code: M-14 | Date: Sep 16, 2028
Code: PED | Date: Mar 16, 2029